FAERS Safety Report 14000349 (Version 1)
Quarter: 2017Q3

REPORT INFORMATION
  Report Type: Spontaneous
  Country: US (occurrence: US)
  Receive Date: 20170922
  Receipt Date: 20170922
  Transmission Date: 20171128
  Serious: No
  Sender: FDA-Public Use
  Company Number: US-JNJFOC-20160911448

PATIENT
  Age: 51 Year
  Sex: Male

DRUGS (2)
  1. XARELTO [Suspect]
     Active Substance: RIVAROXABAN
     Indication: HAEMATURIA
     Route: 048
     Dates: start: 20150214, end: 20150219
  2. XARELTO [Suspect]
     Active Substance: RIVAROXABAN
     Indication: DEEP VEIN THROMBOSIS
     Route: 048
     Dates: start: 20150214, end: 20150219

REACTIONS (1)
  - Haematuria [Unknown]

NARRATIVE: CASE EVENT DATE: 20150218
